FAERS Safety Report 15238796 (Version 1)
Quarter: 2018Q3

REPORT INFORMATION
  Report Type: Report from Study
  Country: IT (occurrence: IT)
  Receive Date: 20180803
  Receipt Date: 20180803
  Transmission Date: 20181010
  Serious: Yes (Other)
  Sender: FDA-Public Use
  Company Number: IT-TEVA-2018-IT-934136

PATIENT
  Age: 40 Year
  Sex: Male

DRUGS (4)
  1. TACHIPIRINA [Suspect]
     Active Substance: ACETAMINOPHEN
     Indication: MUSCULOSKELETAL PAIN
     Route: 048
  2. DICLOFENAC [Suspect]
     Active Substance: DICLOFENAC
     Indication: MUSCULOSKELETAL PAIN
     Route: 048
  3. OKI [Suspect]
     Active Substance: KETOPROFEN LYSINE
     Indication: MUSCULOSKELETAL PAIN
     Route: 048
  4. AULIN [Suspect]
     Active Substance: NIMESULIDE
     Indication: MUSCULOSKELETAL PAIN
     Route: 048

REACTIONS (2)
  - Pruritus generalised [Recovering/Resolving]
  - Hypersensitivity [Recovering/Resolving]

NARRATIVE: CASE EVENT DATE: 20180529
